FAERS Safety Report 12477479 (Version 2)
Quarter: 2016Q3

REPORT INFORMATION
  Report Type: Spontaneous
  Country: IE (occurrence: IE)
  Receive Date: 20160617
  Receipt Date: 20160705
  Transmission Date: 20161109
  Serious: Yes (Life-Threatening, Hospitalization, Other)
  Sender: FDA-Public Use
  Company Number: IE-009507513-1606IRL008050

PATIENT
  Age: 39 Year
  Sex: Female

DRUGS (7)
  1. PUREGON [Suspect]
     Active Substance: FOLLITROPIN
     Indication: IN VITRO FERTILISATION
     Dosage: 300 IU, DAILY
     Route: 058
     Dates: start: 20160512
  2. FOLIC ACID. [Concomitant]
     Active Substance: FOLIC ACID
  3. DIAZEMULS [Suspect]
     Active Substance: DIAZEPAM
     Indication: SEDATIVE THERAPY
     Dosage: 5 MG, UNK
     Route: 042
     Dates: start: 20160525
  4. MEPERIDINE HYDROCHLORIDE. [Suspect]
     Active Substance: MEPERIDINE HYDROCHLORIDE
     Indication: SEDATIVE THERAPY
     Route: 042
     Dates: start: 20160525
  5. PUREGON [Suspect]
     Active Substance: FOLLITROPIN
     Dosage: 375 IU, DAILY
     Dates: start: 20160517
  6. PREGNYL [Suspect]
     Active Substance: CHORIOGONADOTROPIN ALFA
     Indication: IN VITRO FERTILISATION
     Dosage: DOSE : 10000 IU, ONCE A DAY
     Dates: start: 20160523, end: 20160523
  7. SYNAREL [Suspect]
     Active Substance: NAFARELIN ACETATE
     Indication: IN VITRO FERTILISATION
     Dosage: 2 INHALATIONS, TWICE A DAY, DOSAGE FORM: NASAL DROPS (INCLUDING NASAL SPRAY)
     Dates: start: 20160427, end: 20160523

REACTIONS (2)
  - Basilar artery thrombosis [Not Recovered/Not Resolved]
  - Vertebral artery dissection [Not Recovered/Not Resolved]

NARRATIVE: CASE EVENT DATE: 20160529
